FAERS Safety Report 5527449-8 (Version None)
Quarter: 2007Q4

REPORT INFORMATION
  Report Type: 
  Country: None (occurrence: None)
  Receive Date: 20071123
  Receipt Date: 20071114
  Transmission Date: 20080405
  Serious: Yes (Death, Other)
  Sender: FDA-Public Use
  Company Number: 2007-03795

PATIENT
  Age: 61 Year
  Sex: Female

DRUGS (2)
  1. VELCADE [Suspect]
     Indication: MULTIPLE MYELOMA
     Dates: start: 20070101, end: 20070222
  2. THALOMID [Suspect]
     Indication: MULTIPLE MYELOMA
     Dosage: 100 MG, ORAL
     Route: 048
     Dates: start: 20050304, end: 20070222

REACTIONS (7)
  - DISEASE PROGRESSION [None]
  - HAEMOTHORAX [None]
  - LACTIC ACIDOSIS [None]
  - LEUKOPENIA [None]
  - MYOCARDIAL INFARCTION [None]
  - PLASMACYTOMA [None]
  - SEPSIS [None]
